FAERS Safety Report 12833396 (Version 3)
Quarter: 2017Q1

REPORT INFORMATION
  Report Type: Spontaneous
  Country: US (occurrence: US)
  Receive Date: 20161010
  Receipt Date: 20170124
  Transmission Date: 20170428
  Serious: No
  Sender: FDA-Public Use
  Company Number: US-ACTELION-A-US2016-143396

PATIENT
  Age: 61 Year
  Sex: Female
  Weight: 63.49 kg

DRUGS (6)
  1. UPTRAVI [Suspect]
     Active Substance: SELEXIPAG
     Indication: PULMONARY HYPERTENSION
     Dosage: 1000 MCG, BID
     Route: 048
  2. ADCIRCA [Concomitant]
     Active Substance: TADALAFIL
  3. UPTRAVI [Suspect]
     Active Substance: SELEXIPAG
     Dosage: 800 MCG, BID
     Route: 048
  4. UPTRAVI [Suspect]
     Active Substance: SELEXIPAG
     Dosage: 600 MCG, BID
     Route: 048
     Dates: start: 20160912
  5. LETAIRIS [Concomitant]
     Active Substance: AMBRISENTAN
  6. UPTRAVI [Suspect]
     Active Substance: SELEXIPAG
     Dosage: 1400 UNK, UNK
     Route: 048

REACTIONS (5)
  - Fatigue [Unknown]
  - Diarrhoea [Unknown]
  - Headache [Unknown]
  - Feeling cold [Unknown]
  - Chills [Unknown]
